FAERS Safety Report 16946646 (Version 5)
Quarter: 2020Q2

REPORT INFORMATION
  Report Type: Spontaneous
  Country: US (occurrence: US)
  Receive Date: 20191022
  Receipt Date: 20200529
  Transmission Date: 20200713
  Serious: Yes (Hospitalization)
  Sender: FDA-Public Use
  Company Number: US-PFIZER INC-2019452450

PATIENT
  Age: 83 Year
  Sex: Female
  Weight: 61.68 kg

DRUGS (1)
  1. XELJANZ XR [Suspect]
     Active Substance: TOFACITINIB CITRATE
     Indication: RHEUMATOID ARTHRITIS
     Dosage: 11 MG, UNK

REACTIONS (4)
  - Malaise [Unknown]
  - Pain [Unknown]
  - Accident [Not Recovered/Not Resolved]
  - Limb injury [Not Recovered/Not Resolved]
